FAERS Safety Report 6839292-8 (Version None)
Quarter: 2010Q3

REPORT INFORMATION
  Report Type: 
  Country: None (occurrence: None)
  Receive Date: 20100709
  Receipt Date: 20100625
  Transmission Date: 20110219
  Serious: No
  Sender: FDA-Public Use
  Company Number: 2010-1307

PATIENT
  Age: 55 Year
  Sex: Female

DRUGS (1)
  1. SOMATULINE DEPOT [Suspect]
     Indication: RENAL CYST
     Dosage: 60 MG (60 MG, NOT REPORTED),

REACTIONS (6)
  - ABDOMINAL PAIN [None]
  - ASTHENIA [None]
  - CHILLS [None]
  - DIARRHOEA [None]
  - MALAISE [None]
  - NAUSEA [None]
